FAERS Safety Report 7438418-5 (Version None)
Quarter: 2011Q2

REPORT INFORMATION
  Report Type: 
  Country: None (occurrence: None)
  Receive Date: 20110426
  Receipt Date: 20110420
  Transmission Date: 20111010
  Serious: Yes (Other)
  Sender: FDA-Public Use
  Company Number: US-ABBOTT-11P-163-0721282-00

PATIENT
  Sex: Male
  Weight: 104.42 kg

DRUGS (9)
  1. CELEXA [Concomitant]
     Indication: BIPOLAR DISORDER
     Dosage: 40MG DAILY
  2. HUMIRA [Suspect]
     Indication: PRODUCT USED FOR UNKNOWN INDICATION
     Dates: start: 20101201, end: 20110101
  3. DOXEPIN [Concomitant]
     Indication: BIPOLAR DISORDER
     Dosage: 100MG DAILY
  4. ADDERALL 10 [Concomitant]
     Indication: ATTENTION DEFICIT/HYPERACTIVITY DISORDER
  5. CLONAZEPAM [Concomitant]
     Indication: ANXIETY
     Dosage: 4 TABLETS IF NEEDED
  6. ZYPREXA [Concomitant]
     Indication: BIPOLAR DISORDER
     Dosage: 10MG DAILY
  7. PRILOSEC [Concomitant]
     Indication: GASTROOESOPHAGEAL REFLUX DISEASE
     Dosage: 20MG DAILY
  8. TRILEPTAL [Concomitant]
     Indication: BIPOLAR DISORDER
  9. SEROQUEL [Concomitant]
     Indication: BIPOLAR DISORDER
     Dosage: 100MG DAILY

REACTIONS (3)
  - ANAL FISTULA [None]
  - SKIN INFECTION [None]
  - LACERATION [None]
